FAERS Safety Report 5913722-8 (Version None)
Quarter: 2008Q4

REPORT INFORMATION
  Report Type: 
  Country: None (occurrence: None)
  Receive Date: 20081009
  Receipt Date: 20080929
  Transmission Date: 20090506
  Serious: Yes (Hospitalization, Other)
  Sender: FDA-Public Use
  Company Number: US-AMGEN-QUU310652

PATIENT
  Sex: Male

DRUGS (2)
  1. ARANESP [Suspect]
     Indication: ANAEMIA
     Route: 065
     Dates: start: 20080820
  2. HYDROXYUREA [Concomitant]

REACTIONS (6)
  - CONTUSION [None]
  - GAIT DISTURBANCE [None]
  - JOINT SWELLING [None]
  - LEUKOPENIA [None]
  - PAIN [None]
  - PAIN IN EXTREMITY [None]
